FAERS Safety Report 9268896 (Version 1)
Quarter: 2013Q2

REPORT INFORMATION
  Report Type: Spontaneous
  Country: GB (occurrence: GB)
  Receive Date: 20130503
  Receipt Date: 20130503
  Transmission Date: 20140414
  Serious: Yes (Death, Other)
  Sender: FDA-Public Use
  Company Number: PHHY2013GB042133

PATIENT
  Sex: Male
  Weight: 3.47 kg

DRUGS (2)
  1. HYDRALAZINE [Suspect]
     Indication: HYPERTENSION
     Dosage: UNK
  2. AMLODIPINE [Suspect]
     Indication: HYPERTENSION

REACTIONS (9)
  - Death [Fatal]
  - Metabolic acidosis [Unknown]
  - Respiration abnormal [Unknown]
  - Ascites [Unknown]
  - Hypertension [Unknown]
  - Klebsiella test positive [Unknown]
  - Staphylococcus test positive [Unknown]
  - Oedema [Unknown]
  - Blood creatinine increased [Unknown]
